FAERS Safety Report 11810334 (Version 1)
Quarter: 2015Q4

REPORT INFORMATION
  Report Type: Spontaneous
  Country: None (occurrence: None)
  Receive Date: 20151207
  Receipt Date: 20151207
  Transmission Date: 20160305
  Serious: No
  Sender: FDA-Public Use
  Company Number: None

PATIENT
  Age: 30 Year
  Sex: Female
  Weight: 50 kg

DRUGS (2)
  1. VITAMIN C [Concomitant]
     Active Substance: ASCORBIC ACID
  2. NAPROXEN 250MG [Suspect]
     Active Substance: NAPROXEN
     Indication: INFLAMMATION
     Route: 048
     Dates: start: 20151130, end: 20151203

REACTIONS (10)
  - Dizziness [None]
  - Diarrhoea [None]
  - Pain in extremity [None]
  - Anxiety [None]
  - Burning sensation [None]
  - Asthenia [None]
  - Dyspnoea [None]
  - Abdominal pain upper [None]
  - Nausea [None]
  - Palpitations [None]

NARRATIVE: CASE EVENT DATE: 20151204
